FAERS Safety Report 15688329 (Version 2)
Quarter: 2019Q2

REPORT INFORMATION
  Report Type: Spontaneous
  Country: US (occurrence: US)
  Receive Date: 20181205
  Receipt Date: 20190513
  Transmission Date: 20190711
  Serious: Yes (Death, Other)
  Sender: FDA-Public Use
  Company Number: US-ASTRAZENECA-2018SF55759

PATIENT
  Sex: Female
  Weight: 102.1 kg

DRUGS (23)
  1. LEVOTHYROXINE. [Concomitant]
     Active Substance: LEVOTHYROXINE
  2. DIGOXIN. [Concomitant]
     Active Substance: DIGOXIN
  3. PRILOSEC [Suspect]
     Active Substance: OMEPRAZOLE MAGNESIUM
     Route: 048
     Dates: start: 2001, end: 2002
  4. PRILOSEC [Suspect]
     Active Substance: OMEPRAZOLE MAGNESIUM
     Dosage: GENERIC
     Route: 048
     Dates: start: 200301, end: 200806
  5. JANTOVEN [Concomitant]
     Active Substance: WARFARIN SODIUM
  6. LANTUS [Concomitant]
     Active Substance: INSULIN GLARGINE
  7. TRICOR [Concomitant]
     Active Substance: FENOFIBRATE
  8. METOPROLOL. [Concomitant]
     Active Substance: METOPROLOL
  9. NOVOLOG [Concomitant]
     Active Substance: INSULIN ASPART
  10. DILTIAZEM. [Concomitant]
     Active Substance: DILTIAZEM
  11. AMIODARONE [Concomitant]
     Active Substance: AMIODARONE
  12. TEMAZEPAM. [Concomitant]
     Active Substance: TEMAZEPAM
  13. VENLAFAXINE [Concomitant]
     Active Substance: VENLAFAXINE HYDROCHLORIDE
  14. CARVEDILOL. [Concomitant]
     Active Substance: CARVEDILOL
  15. ISOSORBIDE. [Concomitant]
     Active Substance: ISOSORBIDE
  16. METOCLOPRAMIDE. [Concomitant]
     Active Substance: METOCLOPRAMIDE
  17. TRAMADOL. [Concomitant]
     Active Substance: TRAMADOL
  18. FENOFIBRATE. [Concomitant]
     Active Substance: FENOFIBRATE
  19. VESICARE [Concomitant]
     Active Substance: SOLIFENACIN SUCCINATE
  20. SENSIPAR [Concomitant]
     Active Substance: CINACALCET HYDROCHLORIDE
  21. NITROSTAT [Concomitant]
     Active Substance: NITROGLYCERIN
  22. HYDROCHLOROTHIAZIDE. [Concomitant]
     Active Substance: HYDROCHLOROTHIAZIDE
  23. ELMIRON [Concomitant]
     Active Substance: PENTOSAN POLYSULFATE SODIUM

REACTIONS (4)
  - Acute kidney injury [Unknown]
  - End stage renal disease [Unknown]
  - Nephrogenic anaemia [Unknown]
  - Chronic kidney disease [Unknown]
